FAERS Safety Report 9573217 (Version 2)
Quarter: 2013Q4

REPORT INFORMATION
  Report Type: Spontaneous
  Country: US (occurrence: US)
  Receive Date: 20131001
  Receipt Date: 20131001
  Transmission Date: 20140711
  Serious: No
  Sender: FDA-Public Use
  Company Number: US-PURDUE-USA-2012-0082271

PATIENT
  Age: 93 Year
  Sex: Female

DRUGS (1)
  1. BUTRANS [Suspect]
     Indication: PAIN
     Dosage: 5 MCG, Q1H
     Route: 062
     Dates: start: 20120127

REACTIONS (4)
  - Drug effect decreased [Unknown]
  - Drug ineffective [Unknown]
  - Product adhesion issue [Unknown]
  - Wrong technique in drug usage process [Unknown]
